FAERS Safety Report 15023123 (Version 1)
Quarter: 2018Q3

REPORT INFORMATION
  Report Type: Spontaneous
  Country: US (occurrence: US)
  Receive Date: 20180618
  Receipt Date: 20180618
  Transmission Date: 20181010
  Serious: No
  Sender: FDA-Public Use
  Company Number: US-BAYER-2018-106266

PATIENT
  Age: 85 Year
  Sex: Male
  Weight: 73 kg

DRUGS (10)
  1. ASPIRIN [ACETYLSALICYLIC ACID] [Concomitant]
     Active Substance: ASPIRIN
     Dosage: UNK
  2. SPIRIVA [Concomitant]
     Active Substance: TIOTROPIUM BROMIDE MONOHYDRATE
     Dosage: UNK
  3. MUCINEX [Concomitant]
     Active Substance: GUAIFENESIN
  4. VITAMINS NOS [Concomitant]
     Active Substance: VITAMINS
     Dosage: 1 MORNING AND NIGHT
  5. FISH OIL [Concomitant]
     Active Substance: FISH OIL
  6. PHILLIPS^ FIBER GOOD PLUS ENERGY SUPPORT GUMMIES [Suspect]
     Active Substance: VITAMINS
     Dosage: 2 IN THE MORNING
     Route: 048
  7. ALEVE [Suspect]
     Active Substance: NAPROXEN SODIUM
     Indication: PAIN
     Dosage: AS NEEDED
     Route: 048
  8. ADVAIR HFA [Concomitant]
     Active Substance: FLUTICASONE PROPIONATE\SALMETEROL XINAFOATE
     Dosage: UNK
  9. FLOMAX [MORNIFLUMATE] [Concomitant]
  10. VITAMIN D [Concomitant]
     Active Substance: CHOLECALCIFEROL

REACTIONS (3)
  - Inappropriate schedule of drug administration [Unknown]
  - Contusion [Recovered/Resolved]
  - Contusion [Not Recovered/Not Resolved]
